FAERS Safety Report 16467789 (Version 4)
Quarter: 2020Q1

REPORT INFORMATION
  Report Type: Report from Study
  Country: FR (occurrence: FR)
  Receive Date: 20190624
  Receipt Date: 20200103
  Transmission Date: 20200409
  Serious: Yes (Hospitalization, Disabling, Other)
  Sender: FDA-Public Use
  Company Number: FR-VIIV HEALTHCARE LIMITED-FR2018GSK028120

PATIENT
  Age: 40 Year
  Sex: Female
  Weight: 58 kg

DRUGS (13)
  1. EFFEXOR [Concomitant]
     Active Substance: VENLAFAXINE HYDROCHLORIDE
     Dosage: 225 MG, QD
     Route: 048
  2. METRONIDAZOLE. [Concomitant]
     Active Substance: METRONIDAZOLE
     Indication: ACNE
     Dosage: 1 UNK, 1D
     Route: 061
  3. VENLAFAXINE [Concomitant]
     Active Substance: VENLAFAXINE HYDROCHLORIDE
     Indication: DEPRESSION
     Dosage: 225 MG, QD
     Route: 048
     Dates: start: 20170815, end: 20180206
  4. OXAZEPAM. [Concomitant]
     Active Substance: OXAZEPAM
     Indication: ANXIETY
     Dosage: 25 MG, TID
     Route: 048
     Dates: start: 20171010, end: 20180125
  5. CHOLECALCIFEROL [Concomitant]
     Active Substance: CHOLECALCIFEROL
     Dosage: 100000 IU, 1D
     Route: 048
  6. EFFEDERM [Concomitant]
     Active Substance: TRETINOIN
     Indication: ACNE
     Dosage: 1 UNK, 1D
     Route: 061
  7. DEROXAT [Concomitant]
     Active Substance: PAROXETINE HYDROCHLORIDE
  8. MIANSERIN [Concomitant]
     Active Substance: MIANSERIN
     Indication: DEPRESSION
     Dosage: 60 MG, QD
     Route: 048
     Dates: start: 20180130
  9. CABOTEGRAVIR [Suspect]
     Active Substance: CABOTEGRAVIR
     Indication: HIV INFECTION
     Dosage: 400 MG, CYC
     Route: 030
     Dates: start: 20170928, end: 20180515
  10. RILPIVIRINE [Suspect]
     Active Substance: RILPIVIRINE
     Indication: HIV INFECTION
     Dosage: 600 MG, CYC
     Route: 042
     Dates: start: 20170928, end: 20180515
  11. TERALITHE [Concomitant]
     Active Substance: LITHIUM CARBONATE
     Dosage: 400 MG, UNK
     Route: 048
     Dates: start: 20180220
  12. EFFEXOR [Concomitant]
     Active Substance: VENLAFAXINE HYDROCHLORIDE
     Indication: DEPRESSION
     Dosage: 75 MG, 1D
     Route: 048
     Dates: start: 201707, end: 20180127
  13. SERESTA [Concomitant]
     Active Substance: OXAZEPAM
     Indication: ANXIETY
     Dosage: 50 MG TID
     Route: 048
     Dates: start: 20171010, end: 20180125

REACTIONS (4)
  - Bipolar disorder [Recovering/Resolving]
  - Asthenia [Recovering/Resolving]
  - Depression [Recovering/Resolving]
  - Pathogen resistance [Not Recovered/Not Resolved]

NARRATIVE: CASE EVENT DATE: 2000
